FAERS Safety Report 16674820 (Version 1)
Quarter: 2019Q3

REPORT INFORMATION
  Report Type: Spontaneous
  Country: US (occurrence: US)
  Receive Date: 20190806
  Receipt Date: 20190806
  Transmission Date: 20191004
  Serious: No
  Sender: FDA-Public Use
  Company Number: US-SA-2019SA204775

PATIENT
  Sex: Female

DRUGS (3)
  1. BENADRYL ALLERGY + COLD [Concomitant]
     Dosage: 25 MG
  2. IMODIUM A-D [Concomitant]
     Active Substance: LOPERAMIDE HYDROCHLORIDE
     Dosage: 2 MG
  3. AUBAGIO [Suspect]
     Active Substance: TERIFLUNOMIDE
     Dosage: 1 DF, QD
     Route: 048

REACTIONS (1)
  - Product dose omission [Not Recovered/Not Resolved]
